FAERS Safety Report 4590021-0 (Version None)
Quarter: 2005Q1

REPORT INFORMATION
  Report Type: 
  Country: None (occurrence: None)
  Receive Date: 20050218
  Receipt Date: 20050218
  Transmission Date: 20050727
  Serious: No
  Sender: FDA-Public Use
  Company Number: None

PATIENT
  Age: 30 Year
  Sex: Female
  Weight: 58.9676 kg

DRUGS (1)
  1. ZOLOFT [Suspect]
     Indication: DEPRESSION
     Dosage: ONCE A DAY ORAL
     Route: 048
     Dates: start: 20040315, end: 20050217

REACTIONS (3)
  - ACNE [None]
  - NIGHT SWEATS [None]
  - WEIGHT INCREASED [None]
